FAERS Safety Report 8369578-X (Version None)
Quarter: 2012Q2

REPORT INFORMATION
  Report Type: 
  Country: None (occurrence: None)
  Receive Date: 20120518
  Receipt Date: 20120515
  Transmission Date: 20120825
  Serious: Yes (Other)
  Sender: FDA-Public Use
  Company Number: PHFR2011GB05164

PATIENT
  Sex: Male
  Weight: 114.2 kg

DRUGS (3)
  1. CLOZARIL [Suspect]
     Dosage: 250 MG, (100 MG AM AND 150 MG PM DAILY)
     Route: 048
  2. CLOZARIL [Suspect]
     Indication: SCHIZOPHRENIA
     Dosage: 100 MG/DAY
     Route: 048
     Dates: start: 20110819
  3. CLOZARIL [Suspect]
     Dosage: 200 MG/DAY
     Route: 048

REACTIONS (6)
  - RESPIRATORY RATE INCREASED [None]
  - ANTIPSYCHOTIC DRUG LEVEL INCREASED [None]
  - HEART RATE INCREASED [None]
  - BLOOD PRESSURE INCREASED [None]
  - DIFFERENTIAL WHITE BLOOD CELL COUNT ABNORMAL [None]
  - BODY TEMPERATURE INCREASED [None]
